FAERS Safety Report 9490844 (Version 1)
Quarter: 2013Q3

REPORT INFORMATION
  Report Type: Spontaneous
  Country: US (occurrence: None)
  Receive Date: 20130828
  Receipt Date: 20130828
  Transmission Date: 20140515
  Serious: No
  Sender: FDA-Public Use
  Company Number: None

PATIENT
  Age: 47 Year
  Sex: Female
  Weight: 97.98 kg

DRUGS (4)
  1. FLUOXETINE PROZAC SARAFEM [Suspect]
     Indication: DEPRESSION
     Route: 048
     Dates: start: 20130626, end: 20130708
  2. FLUOXETINE PROZAC SARAFEM [Suspect]
     Indication: ANXIETY
     Route: 048
     Dates: start: 20130626, end: 20130708
  3. ENAPRIL [Concomitant]
  4. ALIEVE [Concomitant]

REACTIONS (8)
  - Asthenia [None]
  - Malaise [None]
  - Nausea [None]
  - Chest pain [None]
  - Insomnia [None]
  - Decreased appetite [None]
  - Hyperhidrosis [None]
  - Heart rate increased [None]
